FAERS Safety Report 8354743-8 (Version None)
Quarter: 2012Q2

REPORT INFORMATION
  Report Type: 
  Country: None (occurrence: None)
  Receive Date: 20120511
  Receipt Date: 20120404
  Transmission Date: 20120825
  Serious: Yes (Hospitalization)
  Sender: FDA-Public Use
  Company Number: ES-GLAXOSMITHKLINE-B0793777A

PATIENT
  Age: 83 Year
  Sex: Female

DRUGS (3)
  1. FLECAINIDE ACETATE [Concomitant]
     Indication: ATRIAL FIBRILLATION
  2. CEFUROXIME [Suspect]
     Indication: INFLUENZA
     Route: 065
     Dates: start: 20120201, end: 20120301
  3. SINTROM [Concomitant]
     Indication: ATRIAL FIBRILLATION

REACTIONS (10)
  - BURNING SENSATION [None]
  - INFLUENZA [None]
  - PAIN [None]
  - SUBCUTANEOUS NODULE [None]
  - PAIN IN EXTREMITY [None]
  - PALPITATIONS [None]
  - PYREXIA [None]
  - POLYMYALGIA RHEUMATICA [None]
  - DYSPNOEA [None]
  - DISCOMFORT [None]
